FAERS Safety Report 5888389-8 (Version None)
Quarter: 2008Q3

REPORT INFORMATION
  Report Type: 
  Country: None (occurrence: None)
  Receive Date: 20080918
  Receipt Date: 20080908
  Transmission Date: 20090109
  Serious: Yes (Hospitalization, Other)
  Sender: FDA-Public Use
  Company Number: JP-PFIZER INC-2008049905

PATIENT
  Sex: Male

DRUGS (7)
  1. AMLODIPINE BESYLATE [Suspect]
     Indication: HYPERTENSION
     Dosage: DAILY DOSE:10MG-FREQ:DAILY
     Route: 048
  2. DIOVANE [Concomitant]
     Indication: HYPERTENSION
     Dosage: DAILY DOSE:80MG-FREQ:DAILY
     Route: 048
  3. LOPRESSOR [Concomitant]
     Indication: HYPERTENSION
     Dosage: DAILY DOSE:80MG-FREQ:DAILY
     Route: 048
  4. ZANTAC [Concomitant]
     Indication: GASTRITIS
     Dosage: DAILY DOSE:300MG-FREQ:DAILY
     Route: 048
  5. URINORM [Concomitant]
     Indication: BLOOD URIC ACID INCREASED
     Dosage: DAILY DOSE:50MG-FREQ:DAILY
     Route: 048
  6. ASPIRIN [Concomitant]
     Indication: ANTICOAGULANT THERAPY
     Dosage: DAILY DOSE:100MG-FREQ:DAILY
     Route: 048
  7. PRAVASTATIN SODIUM [Concomitant]
     Indication: LIPIDS ABNORMAL
     Dosage: DAILY DOSE:10MG-FREQ:DAILY
     Route: 048

REACTIONS (1)
  - BLOOD CREATININE INCREASED [None]
